FAERS Safety Report 7878695-X (Version None)
Quarter: 2011Q4

REPORT INFORMATION
  Report Type: 
  Country: None (occurrence: None)
  Receive Date: 20111020
  Receipt Date: 20110914
  Transmission Date: 20120403
  Serious: No
  Sender: FDA-Public Use
  Company Number: 2011AL000068

PATIENT
  Sex: Male

DRUGS (1)
  1. FOLOTYN [Suspect]
     Indication: LYMPHOMA
     Dosage: IV
     Route: 042
     Dates: start: 20110831, end: 20110906

REACTIONS (2)
  - OROPHARYNGEAL BLISTERING [None]
  - TESTICULAR SWELLING [None]
